FAERS Safety Report 5008947-2 (Version None)
Quarter: 2006Q2

REPORT INFORMATION
  Report Type: 
  Country: None (occurrence: None)
  Receive Date: 20060519
  Receipt Date: 20060516
  Transmission Date: 20061013
  Serious: Yes (Other)
  Sender: FDA-Public Use
  Company Number: THQ2006A00396

PATIENT
  Age: 63 Year
  Sex: Male

DRUGS (2)
  1. ACTOS [Suspect]
     Indication: DIABETES MELLITUS NON-INSULIN-DEPENDENT
     Dosage: 15 MG (15 MG, 1 IN 1 D)
     Dates: start: 20050901
  2. ANTIHYPERTENSIVES [Concomitant]

REACTIONS (1)
  - BLOOD PRESSURE INCREASED [None]
